FAERS Safety Report 23933268 (Version 1)
Quarter: 2024Q2

REPORT INFORMATION
  Report Type: Spontaneous
  Country: US (occurrence: US)
  Receive Date: 20240603
  Receipt Date: 20240603
  Transmission Date: 20240716
  Serious: No
  Sender: FDA-Public Use
  Company Number: US-PFIZER INC-202400184683

PATIENT
  Age: 78 Year
  Sex: Female

DRUGS (14)
  1. XELJANZ XR [Suspect]
     Active Substance: TOFACITINIB CITRATE
     Dosage: 11 MG, DAILY
     Route: 048
  2. ASPIRIN [Concomitant]
     Active Substance: ASPIRIN
     Dosage: UNK
  3. ATORVASTATIN CALCIUM [Concomitant]
     Active Substance: ATORVASTATIN CALCIUM
     Dosage: UNK
  4. VITAMIN B COMPLEX [Concomitant]
     Active Substance: CYANOCOBALAMIN\DEXPANTHENOL\NIACINAMIDE\PYRIDOXINE HYDROCHLORIDE\RIBOFLAVIN 5^-PHOSPHATE SODIUM\THIA
     Dosage: UNK
  5. FAMOTIDINE [Concomitant]
     Active Substance: FAMOTIDINE
     Dosage: UNK
  6. METFORMIN HYDROCHLORIDE [Concomitant]
     Active Substance: METFORMIN HYDROCHLORIDE
     Dosage: UNK
  7. MOTRIN [Concomitant]
     Active Substance: IBUPROFEN
     Dosage: UNK
  8. OMEGA-3 FATTY ACIDS [Concomitant]
     Active Substance: OMEGA-3 FATTY ACIDS
     Dosage: UNK
  9. CALCIUM [Concomitant]
     Active Substance: CALCIUM
     Dosage: UNK
  10. PROLIA [Concomitant]
     Active Substance: DENOSUMAB
     Dosage: UNK
  11. TRANDOLAPRIL [Concomitant]
     Active Substance: TRANDOLAPRIL
     Dosage: UNK
  12. VALERIANA OFFICINALIS ROOT [Concomitant]
     Active Substance: VALERIAN
  13. VITAMIN C [Concomitant]
     Active Substance: ASCORBIC ACID
     Dosage: UNK
  14. VITAMIN D3 [Concomitant]
     Active Substance: CHOLECALCIFEROL
     Dosage: UNK

REACTIONS (7)
  - Fall [Recovering/Resolving]
  - Joint injury [Recovering/Resolving]
  - Arthralgia [Recovering/Resolving]
  - Hypotension [Recovered/Resolved]
  - Blood potassium increased [Unknown]
  - Headache [Unknown]
  - Sciatica [Unknown]

NARRATIVE: CASE EVENT DATE: 20230101
